FAERS Safety Report 7564045-5 (Version None)
Quarter: 2011Q2

REPORT INFORMATION
  Report Type: 
  Country: None (occurrence: None)
  Receive Date: 20110622
  Receipt Date: 20110614
  Transmission Date: 20111010
  Serious: No
  Sender: FDA-Public Use
  Company Number: US-ELI_LILLY_AND_COMPANY-US201103008533

PATIENT
  Sex: Male
  Weight: 142.68 kg

DRUGS (17)
  1. HUMALOG [Suspect]
     Indication: TYPE 2 DIABETES MELLITUS
     Dosage: 15 U, BID
     Route: 058
     Dates: start: 20110101
  2. METOPROLOL TARTRATE [Concomitant]
     Dosage: 100 MG, BID
     Route: 048
  3. SIMVASTATIN [Concomitant]
     Dosage: 80 MG, QD
     Route: 048
  4. ASPIRIN LOW [Concomitant]
     Dosage: 325 MG, QD
     Route: 048
  5. PRILOSEC [Concomitant]
     Dosage: 40 MG, QD
     Route: 048
  6. ZITHROMAX [Concomitant]
     Dosage: 500 MG, SINGLE
     Route: 048
  7. ALLOPURINOL [Concomitant]
     Dosage: 200 MG, BID
     Route: 048
  8. BYETTA [Concomitant]
     Dosage: 0.02 ML, BID
     Route: 058
  9. K-DUR [Concomitant]
     Dosage: 60 MEQ, QD
     Route: 048
  10. FLONASE [Concomitant]
     Dosage: 0.05 MG, QD
     Route: 055
  11. LEVOXYL [Concomitant]
     Dosage: 0.2 MG, QD
     Route: 048
  12. ZITHROMAX [Concomitant]
     Dosage: 250 MG, QD
     Route: 048
  13. BUMEX [Concomitant]
     Dosage: 1 MG, QOD
     Route: 048
  14. CELEXA [Concomitant]
     Dosage: 20 MG, QD
  15. ALDACTONE [Concomitant]
     Dosage: 25 MG, QD
     Route: 048
  16. BUMEX [Concomitant]
     Dosage: 2 MG, QOD
     Route: 048
  17. CALCITRIOL [Concomitant]
     Dosage: 0.025 MG, QD
     Route: 048

REACTIONS (1)
  - HEARING IMPAIRED [None]
